FAERS Safety Report 7518597-1 (Version None)
Quarter: 2011Q2

REPORT INFORMATION
  Report Type: 
  Country: None (occurrence: None)
  Receive Date: 20110601
  Receipt Date: 20110601
  Transmission Date: 20111010
  Serious: Yes (Other)
  Sender: FDA-Public Use
  Company Number: None

PATIENT
  Age: 55 Year
  Sex: Male
  Weight: 127.0072 kg

DRUGS (1)
  1. LIPITOR [Suspect]
     Dosage: SEVERAL YEARS???

REACTIONS (1)
  - TENDON RUPTURE [None]
